FAERS Safety Report 8732902 (Version 2)
Quarter: 2012Q4

REPORT INFORMATION
  Report Type: 
  Country: GB (occurrence: GB)
  Receive Date: 20120820
  Receipt Date: 20120830
  Transmission Date: 20130627
  Serious: Yes (Disabling)
  Sender: FDA-Public Use
  Company Number: GB-PFIZER INC-2012199258

PATIENT
  Age: 87 Year
  Sex: Female
  Weight: 65 kg

DRUGS (6)
  1. ATORVASTATIN [Suspect]
     Indication: CARDIOVASCULAR EVENT PROPHYLAXIS
     Dosage: 40 mg, 1x/day
     Route: 048
     Dates: start: 2009, end: 20120716
  2. OMEPRAZOLE [Concomitant]
     Indication: DYSPEPSIA
     Route: 048
  3. ACETYLSALICYLIC ACID [Concomitant]
     Dosage: 75 mg, 1x/day
     Route: 048
  4. CLOPIDOGREL [Concomitant]
     Indication: ISCHAEMIC HEART DISEASE PROPHYLAXIS
     Dosage: 75 mg, UNK
     Route: 048
  5. SYMBICORT [Concomitant]
     Dosage: 2 DF, 2x/day
  6. TERBUTALINE [Concomitant]
     Dosage: 2 DF, 4x/day
     Route: 055

REACTIONS (5)
  - Amnesia [Recovering/Resolving]
  - Balance disorder [Recovering/Resolving]
  - Hypersomnia [Recovering/Resolving]
  - Incontinence [Recovering/Resolving]
  - Asthenia [Recovering/Resolving]
